FAERS Safety Report 5937222-4 (Version None)
Quarter: 2008Q4

REPORT INFORMATION
  Report Type: 
  Country: None (occurrence: None)
  Receive Date: 20081031
  Receipt Date: 20081024
  Transmission Date: 20090506
  Serious: Yes (Hospitalization, Other)
  Sender: FDA-Public Use
  Company Number: DE-NOVOPROD-277700

PATIENT
  Sex: Male
  Weight: 10.3 kg

DRUGS (2)
  1. NORDITROPIN [Suspect]
     Indication: GROWTH HORMONE DEFICIENCY
     Dosage: 0.15-0.2 MG, QD
     Route: 058
     Dates: start: 20070830, end: 20080131
  2. NORDITROPIN [Suspect]
     Dosage: .05 MG, QD
     Route: 058
     Dates: start: 20080312

REACTIONS (3)
  - RESTLESSNESS [None]
  - SCREAMING [None]
  - SLEEP DISORDER [None]
